FAERS Safety Report 4413596-0 (Version None)
Quarter: 2004Q3

REPORT INFORMATION
  Report Type: 
  Country: None (occurrence: None)
  Receive Date: 20040728
  Receipt Date: 20040715
  Transmission Date: 20050211
  Serious: Yes (Other)
  Sender: FDA-Public Use
  Company Number: 2003179701NO

PATIENT
  Age: 63 Year
  Sex: Female

DRUGS (7)
  1. DETRUSITOL [Suspect]
     Indication: HYPERTONIC BLADDER
     Dosage: 2 MG, BID, ORAL
     Route: 048
     Dates: start: 19980609, end: 20000901
  2. DETRUSITOL [Suspect]
     Indication: HYPERTONIC BLADDER
     Dosage: 2 MG, BID, ORAL
     Route: 048
     Dates: start: 20010101, end: 20010101
  3. XALATAN [Concomitant]
  4. OVESTERIN [Concomitant]
  5. DIENOESTROL (DIENESTROL) [Concomitant]
  6. FLUTIDE NASAL          (FLUTICASONE PROPIONATE) [Concomitant]
  7. ZOCOR [Concomitant]

REACTIONS (2)
  - BLOOD PRESSURE INCREASED [None]
  - OPEN ANGLE GLAUCOMA [None]
